FAERS Safety Report 8422558-8 (Version None)
Quarter: 2012Q2

REPORT INFORMATION
  Report Type: 
  Country: None (occurrence: None)
  Receive Date: 20120608
  Receipt Date: 20120528
  Transmission Date: 20120825
  Serious: Yes (Other)
  Sender: FDA-Public Use
  Company Number: CA-CELGENEUS-028-C5013-12053306

PATIENT
  Age: 92 Year
  Sex: Female

DRUGS (7)
  1. LENALIDOMIDE [Suspect]
     Indication: MULTIPLE MYELOMA
     Route: 048
  2. IRON [Concomitant]
     Indication: SUPPLEMENTATION THERAPY
     Dosage: 30 MILLIGRAM
     Route: 048
     Dates: start: 20100101
  3. DEXAMETHASONE [Suspect]
     Indication: MULTIPLE MYELOMA
     Route: 065
  4. CALCIUM [Concomitant]
     Indication: SUPPLEMENTATION THERAPY
     Dosage: 330 MILLIGRAM
     Route: 048
     Dates: start: 20100101
  5. ACETAMINOPHEN [Concomitant]
     Indication: BACK PAIN
     Dosage: 650 MILLIGRAM
     Route: 048
     Dates: start: 20120101
  6. UREMOL [Concomitant]
     Indication: DRY SKIN
     Route: 061
     Dates: start: 20110504
  7. ENOXAPARIN [Concomitant]
     Dosage: 30 MILLIGRAM
     Route: 058
     Dates: start: 20110826

REACTIONS (1)
  - BREAST CANCER [None]
